FAERS Safety Report 7669555-8 (Version None)
Quarter: 2011Q3

REPORT INFORMATION
  Report Type: 
  Country: None (occurrence: None)
  Receive Date: 20110808
  Receipt Date: 20110805
  Transmission Date: 20111222
  Serious: Yes (Hospitalization)
  Sender: FDA-Public Use
  Company Number: US-BRISTOL-MYERS SQUIBB COMPANY-15921281

PATIENT
  Age: 64 Year
  Sex: Male
  Weight: 79 kg

DRUGS (17)
  1. TAXOL [Suspect]
     Indication: NON-SMALL CELL LUNG CANCER
     Dosage: LAST TREATMENT:11JUL11 HELD BY 3 DAYS
     Dates: start: 20110606
  2. CARBOPLATIN [Suspect]
     Indication: NON-SMALL CELL LUNG CANCER
     Dosage: LAST TREATMENT:11JUL11 1DF:AUC=2 HELD BY 3 DAYS
     Dates: start: 20110606
  3. BENADRYL [Concomitant]
  4. NYSTATIN MOUTHWASH [Concomitant]
  5. SPIRIVA [Concomitant]
  6. ZOFRAN [Concomitant]
  7. FOLIC ACID [Concomitant]
  8. DURAGESIC-100 [Concomitant]
  9. LANSOPRAZOLE [Concomitant]
  10. CARAFATE [Concomitant]
  11. MAALOX [Concomitant]
  12. MORPHINE SULFATE [Concomitant]
  13. SYMBICORT [Concomitant]
  14. VENTOLIN HFA [Concomitant]
     Dosage: VENTOLIN HFA
  15. AUGMENTIN '125' [Concomitant]
  16. PROCHLORPERAZINE MALEATE [Concomitant]
  17. VIAGRA [Concomitant]

REACTIONS (3)
  - DYSPHAGIA [None]
  - DECREASED APPETITE [None]
  - OESOPHAGITIS [None]
